FAERS Safety Report 16298774 (Version 1)
Quarter: 2019Q2

REPORT INFORMATION
  Report Type: Spontaneous
  Country: US (occurrence: US)
  Receive Date: 20190510
  Receipt Date: 20190510
  Transmission Date: 20190711
  Serious: No
  Sender: FDA-Public Use
  Company Number: US-ALKERMES INC.-ALK-2018-005772

PATIENT
  Age: 54 Year
  Sex: Male
  Weight: 85.26 kg

DRUGS (2)
  1. VIVITROL [Suspect]
     Active Substance: NALTREXONE
     Indication: ALCOHOLISM
     Dosage: 380 MG, QMO
     Route: 030
     Dates: start: 20180702, end: 20181219
  2. LEVAQUIN [Suspect]
     Active Substance: LEVOFLOXACIN
     Indication: PRODUCT USED FOR UNKNOWN INDICATION
     Route: 065

REACTIONS (14)
  - Muscle spasms [Recovered/Resolved]
  - Arthralgia [Recovered/Resolved]
  - Injection site mass [Recovered/Resolved]
  - Tendonitis [Unknown]
  - Injection site pain [Recovered/Resolved]
  - Injection site swelling [Recovered/Resolved]
  - Malaise [Recovered/Resolved]
  - Injection site reaction [Recovered/Resolved]
  - Injection site erythema [Unknown]
  - Hangover [Recovered/Resolved]
  - Erectile dysfunction [Recovering/Resolving]
  - Headache [Recovered/Resolved]
  - Injection site nodule [Recovered/Resolved]
  - Injection site induration [Recovered/Resolved]

NARRATIVE: CASE EVENT DATE: 20180103
